FAERS Safety Report 22314265 (Version 1)
Quarter: 2023Q2

REPORT INFORMATION
  Report Type: Spontaneous
  Country: US (occurrence: US)
  Receive Date: 20230512
  Receipt Date: 20230512
  Transmission Date: 20230721
  Serious: No
  Sender: FDA-Public Use
  Company Number: US-GSKCCFUS-Case-01690267_AE-95372

PATIENT
  Sex: Female

DRUGS (1)
  1. NUCALA [Suspect]
     Active Substance: MEPOLIZUMAB
     Indication: Product used for unknown indication
     Dosage: UNK

REACTIONS (8)
  - Arthralgia [Unknown]
  - Muscle spasms [Unknown]
  - Headache [Unknown]
  - Back pain [Unknown]
  - Influenza like illness [Unknown]
  - Nasal congestion [Unknown]
  - Throat tightness [Recovering/Resolving]
  - Chest discomfort [Recovering/Resolving]
